FAERS Safety Report 7933475-1 (Version None)
Quarter: 2011Q4

REPORT INFORMATION
  Report Type: 
  Country: None (occurrence: None)
  Receive Date: 20111122
  Receipt Date: 20101102
  Transmission Date: 20120403
  Serious: Yes (Hospitalization, Other)
  Sender: FDA-Public Use
  Company Number: US-BAYER-201031421NA

PATIENT
  Age: 48 Year
  Sex: Female
  Weight: 70.748 kg

DRUGS (18)
  1. MULTI-VITAMIN [Concomitant]
     Dosage: UNK UNK, QD
  2. VALTREX [Concomitant]
     Dosage: 1 G, PRN
  3. IBUPROFEN [Concomitant]
  4. OSCAL [Concomitant]
     Dosage: 500 MG, QD
  5. YAZ [Suspect]
     Indication: CONTRACEPTION
     Route: 048
     Dates: start: 20071001, end: 20080701
  6. CYMBALTA [Concomitant]
     Dosage: 60 MG, QD
  7. GABAPENTIN [Concomitant]
  8. NABUMETONE [Concomitant]
  9. BUPROPION HYDROCHLORIDE [Concomitant]
  10. OYSCO [Concomitant]
  11. CITRACAL [Concomitant]
  12. DIETARY SUPPLEMENT [Concomitant]
  13. FLEXERIL [Concomitant]
     Dosage: 10 MG, QD
  14. PREVACID [Concomitant]
  15. ALPRAZOLAM [Concomitant]
  16. NEURONTIN [Concomitant]
     Dosage: 800 MG, QD
  17. AMITRIPTYLINE HCL [Concomitant]
     Dosage: 10 MG, PRN
  18. EVISTA [Concomitant]

REACTIONS (6)
  - PANCREATITIS [None]
  - ABDOMINAL PAIN UPPER [None]
  - ABDOMINAL DISCOMFORT [None]
  - CHOLELITHIASIS [None]
  - CHOLECYSTITIS CHRONIC [None]
  - ABDOMINAL RIGIDITY [None]
